FAERS Safety Report 25478086 (Version 1)
Quarter: 2025Q2

REPORT INFORMATION
  Report Type: Spontaneous
  Country: GB (occurrence: GB)
  Receive Date: 20250625
  Receipt Date: 20250625
  Transmission Date: 20250716
  Serious: Yes (Other)
  Sender: TEVA
  Company Number: GB-MHRA-TPP15425331C9097708YC1750264892140

PATIENT
  Age: 84 Year
  Sex: Male
  Weight: 74 kg

DRUGS (3)
  1. TAMSULOSIN [Suspect]
     Active Substance: TAMSULOSIN
     Indication: Ill-defined disorder
     Dosage: TAKE ONE CAPSULE DAILY, DAILY DOSE : 1 DOSAGE FORM DAILY
     Route: 065
     Dates: start: 20250604
  2. AMLODIPINE [Concomitant]
     Active Substance: AMLODIPINE BESYLATE
     Indication: Ill-defined disorder
     Dosage: TAKE ONE DAILY, DAILY DOSE : 1 DOSAGE FORM DAILY
     Route: 065
     Dates: start: 20241210
  3. ATORVASTATIN [Concomitant]
     Active Substance: ATORVASTATIN
     Indication: Ill-defined disorder
     Dosage: TAKE ONE DAILY, DAILY DOSE : 1 DOSAGE FORM DAILY
     Route: 065
     Dates: start: 20240607

REACTIONS (2)
  - Syncope [Recovered/Resolved]
  - Dizziness [Recovered/Resolved]
